FAERS Safety Report 25041662 (Version 1)
Quarter: 2025Q1

REPORT INFORMATION
  Report Type: Other
  Country: JP (occurrence: JP)
  Receive Date: 20250305
  Receipt Date: 20250305
  Transmission Date: 20250409
  Serious: Yes (Other)
  Sender: PL DEVELOPMENTS
  Company Number: JP-P+L Developments of Newyork Corporation-2172278

PATIENT
  Age: 51 Year
  Sex: Female

DRUGS (7)
  1. ESOMEPRAZOLE MAGNESIUM [Suspect]
     Active Substance: ESOMEPRAZOLE MAGNESIUM
     Indication: Product used for unknown indication
  2. AMLODIPINE [Suspect]
     Active Substance: AMLODIPINE BESYLATE
  3. AVACOPAN [Suspect]
     Active Substance: AVACOPAN
  4. RITUXIMAB [Concomitant]
     Active Substance: RITUXIMAB
  5. PREDNISOLONE [Concomitant]
     Active Substance: PREDNISOLONE
  6. ELDECALCITOL [Suspect]
     Active Substance: ELDECALCITOL
  7. SULFAMETHOXAZOLE AND TRIMETHOPRIM [Suspect]
     Active Substance: SULFAMETHOXAZOLE\TRIMETHOPRIM

REACTIONS (1)
  - Erythema multiforme [Unknown]
